FAERS Safety Report 4607895-7 (Version None)
Quarter: 2005Q1

REPORT INFORMATION
  Report Type: 
  Country: None (occurrence: None)
  Receive Date: 20050310
  Receipt Date: 20050302
  Transmission Date: 20050727
  Serious: Yes (Other)
  Sender: FDA-Public Use
  Company Number: 2005-03-0040

PATIENT
  Age: 36 Year
  Sex: Female
  Weight: 47 kg

DRUGS (6)
  1. TEMODAL [Suspect]
     Indication: GLIOBLASTOMA
     Dosage: 110 MG QD X5D ORAL
     Route: 048
     Dates: start: 20050111
  2. DEXAMETHASONE [Concomitant]
  3. PANTOPRAZOL [Concomitant]
  4. ENOXAPARIN SODIUM [Concomitant]
  5. NOVAMINSULFON [Concomitant]
  6. RADIATION THERAPY [Concomitant]

REACTIONS (4)
  - CEREBELLAR HAEMORRHAGE [None]
  - GLIOBLASTOMA [None]
  - INTRACRANIAL VENOUS SINUS THROMBOSIS [None]
  - NEOPLASM RECURRENCE [None]
